FAERS Safety Report 5155346-9 (Version None)
Quarter: 2006Q4

REPORT INFORMATION
  Report Type: 
  Country: None (occurrence: None)
  Receive Date: 20061114
  Receipt Date: 20061102
  Transmission Date: 20070319
  Serious: Yes (Hospitalization)
  Sender: FDA-Public Use
  Company Number: HQWYE346203NOV06

PATIENT
  Age: 45 Year
  Sex: Female
  Weight: 108.51 kg

DRUGS (1)
  1. TYGACIL [Suspect]
     Indication: WOUND INFECTION STAPHYLOCOCCAL
     Dosage: 50 MG 2X PER 1 DAY, INTRAVENOUS; 100 MG 1X PER 1 DAY, INTRAVENOUS
     Route: 042

REACTIONS (1)
  - TRANSIENT ISCHAEMIC ATTACK [None]
